FAERS Safety Report 21138486 (Version 5)
Quarter: 2022Q4

REPORT INFORMATION
  Report Type: Report from Study
  Country: CN (occurrence: None)
  Receive Date: 20220727
  Receipt Date: 20221027
  Transmission Date: 20230113
  Serious: Yes (Hospitalization)
  Sender: FDA-Public Use
  Company Number: CN-ROCHE-3147111

PATIENT
  Age: 59 Year
  Sex: Male
  Weight: 70 kg

DRUGS (2)
  1. TIRAGOLUMAB [Suspect]
     Active Substance: TIRAGOLUMAB
     Indication: Squamous cell carcinoma of lung
     Dosage: ON 24/JUN/2022, RECEIVED MOST RECENT DOSE OF TIRAGOLUMAB PRIOR TO AE/SAE WAS 840 MG.
     Route: 042
     Dates: start: 20220402
  2. ATEZOLIZUMAB [Suspect]
     Active Substance: ATEZOLIZUMAB
     Indication: Squamous cell carcinoma of lung
     Dosage: ON 24/JUN/2022, RECEIVED MOST RECENT DOSE OF ATEZOLIZUMAB PRIOR TO AE/SAE WAS 1680 MG.
     Route: 041
     Dates: start: 20220402

REACTIONS (1)
  - Blood creatine phosphokinase increased [Recovered/Resolved]

NARRATIVE: CASE EVENT DATE: 20220721
